FAERS Safety Report 7320534-X (Version None)
Quarter: 2011Q1

REPORT INFORMATION
  Report Type: 
  Country: None (occurrence: None)
  Receive Date: 20110228
  Receipt Date: 20110214
  Transmission Date: 20110831
  Serious: Yes (Congenital Anomaly)
  Sender: FDA-Public Use
  Company Number: IL-JNJFOC-20110206357

PATIENT

DRUGS (2)
  1. GOLIMUMAB [Suspect]
     Route: 015
  2. GOLIMUMAB [Suspect]
     Indication: DRUG EXPOSURE DURING PREGNANCY
     Route: 015

REACTIONS (2)
  - MATERNAL DRUGS AFFECTING FOETUS [None]
  - ANENCEPHALY [None]
